FAERS Safety Report 8511276 (Version 3)
Quarter: 2016Q2

REPORT INFORMATION
  Report Type: Spontaneous
  Country: US (occurrence: US)
  Receive Date: 20120413
  Receipt Date: 20160608
  Transmission Date: 20160815
  Serious: No
  Sender: FDA-Public Use
  Company Number: US-ASTRAZENECA-2011SE65715

PATIENT
  Age: 54 Year
  Sex: Female
  Weight: 129.7 kg

DRUGS (12)
  1. NEXIUM [Suspect]
     Active Substance: ESOMEPRAZOLE MAGNESIUM
     Indication: GASTROOESOPHAGEAL REFLUX DISEASE
     Dosage: 40MG TWO TIMES A DAY
     Route: 048
     Dates: start: 2012, end: 20150818
  2. NEXIUM [Suspect]
     Active Substance: ESOMEPRAZOLE MAGNESIUM
     Indication: DYSPEPSIA
     Dosage: 40MG TWO TIMES A DAY
     Route: 048
     Dates: end: 201602
  3. NEXIUM [Suspect]
     Active Substance: ESOMEPRAZOLE MAGNESIUM
     Indication: DYSPEPSIA
     Dosage: 40 MG TWO TIMES A DAY
     Route: 048
  4. NEXIUM [Suspect]
     Active Substance: ESOMEPRAZOLE MAGNESIUM
     Indication: GASTROOESOPHAGEAL REFLUX DISEASE
     Route: 048
     Dates: start: 201602
  5. BUMEX [Concomitant]
     Active Substance: BUMETANIDE
     Indication: OEDEMA
     Route: 048
     Dates: start: 201406, end: 201503
  6. NEXIUM [Suspect]
     Active Substance: ESOMEPRAZOLE MAGNESIUM
     Indication: DYSPEPSIA
     Dosage: 40MG TWO TIMES A DAY
     Route: 048
     Dates: start: 2012, end: 20150818
  7. NEXIUM [Suspect]
     Active Substance: ESOMEPRAZOLE MAGNESIUM
     Indication: GASTROOESOPHAGEAL REFLUX DISEASE
     Dosage: 40MG TWO TIMES A DAY
     Route: 048
     Dates: end: 201602
  8. LISINOPRIL. [Suspect]
     Active Substance: LISINOPRIL
     Indication: HYPERTENSION
     Route: 048
     Dates: start: 2013
  9. NEXIUM [Suspect]
     Active Substance: ESOMEPRAZOLE MAGNESIUM
     Indication: DYSPEPSIA
     Route: 048
     Dates: start: 201602
  10. LASIX [Concomitant]
     Active Substance: FUROSEMIDE
     Indication: OEDEMA
     Dosage: AS REQUIRED
     Route: 048
     Dates: start: 2013, end: 201406
  11. LASIX [Concomitant]
     Active Substance: FUROSEMIDE
     Indication: OEDEMA
     Dosage: AS REQUIRED
     Route: 048
     Dates: start: 201503
  12. NEXIUM [Suspect]
     Active Substance: ESOMEPRAZOLE MAGNESIUM
     Indication: GASTROOESOPHAGEAL REFLUX DISEASE
     Dosage: 40 MG TWO TIMES A DAY
     Route: 048

REACTIONS (10)
  - Hypertension [Unknown]
  - Sleep apnoea syndrome [Unknown]
  - Dyspepsia [Unknown]
  - Intentional product misuse [Unknown]
  - Oedema [Unknown]
  - Muscle spasms [Unknown]
  - Off label use [Unknown]
  - Blood potassium decreased [Unknown]
  - Gastrooesophageal reflux disease [Unknown]
  - Drug dose omission [Unknown]

NARRATIVE: CASE EVENT DATE: 2012
